FAERS Safety Report 25764386 (Version 1)
Quarter: 2025Q3

REPORT INFORMATION
  Report Type: Spontaneous
  Country: US (occurrence: US)
  Receive Date: 20250905
  Receipt Date: 20250905
  Transmission Date: 20251020
  Serious: No
  Sender: DOMPE FARMACEUTICI
  Company Number: US-FARMAPROD-202501-0308

PATIENT
  Sex: Female
  Weight: 50.8 kg

DRUGS (21)
  1. OXERVATE [Suspect]
     Active Substance: CENEGERMIN-BKBJ
     Indication: Neurotrophic keratopathy
     Route: 047
     Dates: start: 20250127
  2. POTASSIUM [Concomitant]
     Active Substance: POTASSIUM
  3. TEARS LUBRICANT [Concomitant]
     Active Substance: GLYCERIN\HYPROMELLOSES\POLYETHYLENE GLYCOL 400
  4. DEXAMETHASONE SODIUM PHOSPHATE [Concomitant]
     Active Substance: DEXAMETHASONE SODIUM PHOSPHATE
  5. MURO-128 [Concomitant]
  6. POLYMYXIN B SUL-TRIMETHOPRIM [Concomitant]
  7. OMEPRAZOLE [Concomitant]
     Active Substance: OMEPRAZOLE
  8. ZETIA [Concomitant]
     Active Substance: EZETIMIBE
  9. XIIDRA [Concomitant]
     Active Substance: LIFITEGRAST
  10. AMANTADINE [Concomitant]
     Active Substance: AMANTADINE
  11. ESCITALOPRAM OXALATE [Concomitant]
     Active Substance: ESCITALOPRAM OXALATE
  12. PROPRANOLOL HYDROCHLORIDE [Concomitant]
     Active Substance: PROPRANOLOL HYDROCHLORIDE
  13. ROPINIROLE HYDROCHLORIDE [Concomitant]
     Active Substance: ROPINIROLE HYDROCHLORIDE
  14. JANUVIA [Concomitant]
     Active Substance: SITAGLIPTIN PHOSPHATE
  15. METFORMIN HYDROCHLORIDE [Concomitant]
     Active Substance: METFORMIN HYDROCHLORIDE
  16. BUPROPION [Concomitant]
     Active Substance: BUPROPION
  17. MIRTAZAPINE [Concomitant]
     Active Substance: MIRTAZAPINE
  18. LORAZEPAM [Concomitant]
     Active Substance: LORAZEPAM
  19. ALPHA LIPOIC ACID [Concomitant]
     Active Substance: .ALPHA.-LIPOIC ACID
  20. DIAZEPAM [Concomitant]
     Active Substance: DIAZEPAM
  21. TRAZODONE HCL [Concomitant]
     Active Substance: TRAZODONE HYDROCHLORIDE

REACTIONS (2)
  - Eye irritation [Unknown]
  - Eye pain [Unknown]
